FAERS Safety Report 18079645 (Version 1)
Quarter: 2020Q3

REPORT INFORMATION
  Report Type: Spontaneous
  Country: US (occurrence: US)
  Receive Date: 20200728
  Receipt Date: 20200728
  Transmission Date: 20201103
  Serious: No
  Sender: FDA-Public Use
  Company Number: None

PATIENT
  Sex: Female

DRUGS (2)
  1. METHOTREXATE SDV (2ML) 50MG/2ML WEST?WARD [Suspect]
     Active Substance: METHOTREXATE
     Indication: SYSTEMIC LUPUS ERYTHEMATOSUS
     Dosage: ?          OTHER ROUTE:UNDER THE SKIN?
     Dates: start: 202005
  2. METHOTREXATE SDV (2ML) 50MG/2ML WEST?WARD [Suspect]
     Active Substance: METHOTREXATE
     Indication: RHEUMATOID ARTHRITIS
     Dosage: ?          OTHER ROUTE:UNDER THE SKIN?
     Dates: start: 202005

REACTIONS (2)
  - Therapy interrupted [None]
  - Nausea [None]
